FAERS Safety Report 18672942 (Version 2)
Quarter: 2021Q2

REPORT INFORMATION
  Report Type: Spontaneous
  Country: US (occurrence: US)
  Receive Date: 20201228
  Receipt Date: 20210408
  Transmission Date: 20210717
  Serious: No
  Sender: FDA-Public Use
  Company Number: US-PFIZER INC-2020510393

PATIENT
  Age: 89 Year
  Sex: Female

DRUGS (1)
  1. DETROL LA [Suspect]
     Active Substance: TOLTERODINE TARTRATE
     Dosage: UNK

REACTIONS (4)
  - Trichotillomania [Unknown]
  - Illness [Unknown]
  - Pain [Unknown]
  - Frustration tolerance decreased [Unknown]
